FAERS Safety Report 17985288 (Version 1)
Quarter: 2020Q3

REPORT INFORMATION
  Report Type: Spontaneous
  Country: JP (occurrence: JP)
  Receive Date: 20200706
  Receipt Date: 20200706
  Transmission Date: 20201103
  Serious: Yes (Other)
  Sender: FDA-Public Use
  Company Number: JP-CELGENEUS-JPN-20200608651

PATIENT
  Age: 75 Year
  Sex: Male

DRUGS (5)
  1. REVLIMID [Suspect]
     Active Substance: LENALIDOMIDE
     Dosage: DOSE INCREASED BY 5 MG EVERY CYCLE
     Route: 048
     Dates: start: 2017
  2. REVLIMID [Suspect]
     Active Substance: LENALIDOMIDE
     Dosage: 20 MILLIGRAM
     Route: 048
  3. ISTODAX [Suspect]
     Active Substance: ROMIDEPSIN
     Indication: CUTANEOUS T-CELL LYMPHOMA
     Dosage: UNKNOWN
     Route: 041
  4. REVLIMID [Suspect]
     Active Substance: LENALIDOMIDE
     Indication: CUTANEOUS T-CELL LYMPHOMA
     Route: 048
     Dates: start: 20170911, end: 2017
  5. REVLIMID [Suspect]
     Active Substance: LENALIDOMIDE
     Indication: OFF LABEL USE
     Dosage: 10 MILLIGRAM
     Route: 048
     Dates: start: 201710, end: 201711

REACTIONS (1)
  - Pneumonia aspiration [Unknown]

NARRATIVE: CASE EVENT DATE: 2017
